FAERS Safety Report 6073201-7 (Version None)
Quarter: 2009Q1

REPORT INFORMATION
  Report Type: 
  Country: None (occurrence: None)
  Receive Date: 20090211
  Receipt Date: 20090202
  Transmission Date: 20090719
  Serious: Yes (Other)
  Sender: FDA-Public Use
  Company Number: US-ALLERGAN-0901256US

PATIENT

DRUGS (4)
  1. BOTOX [Suspect]
     Indication: MUSCLE CONTRACTURE
     Dosage: 300 UNITS, SINGLE
     Route: 030
     Dates: start: 20081101, end: 20081101
  2. BOTOX [Suspect]
     Indication: MUSCLE SPASTICITY
  3. BOTOX [Suspect]
     Indication: PAIN
  4. BOTOX [Suspect]
     Indication: CEREBROVASCULAR ACCIDENT

REACTIONS (3)
  - HYPOTENSION [None]
  - PYREXIA [None]
  - URINARY TRACT INFECTION [None]
